FAERS Safety Report 13034040 (Version 1)
Quarter: 2016Q4

REPORT INFORMATION
  Report Type: Spontaneous
  Country: US (occurrence: US)
  Receive Date: 20161216
  Receipt Date: 20161216
  Transmission Date: 20170207
  Serious: Yes (Hospitalization, Other)
  Sender: FDA-Public Use
  Company Number: US-ASTRAZENECA-2016SF31590

PATIENT
  Age: 67 Year
  Sex: Male
  Weight: 93 kg

DRUGS (5)
  1. SIMVASTATIN. [Concomitant]
     Active Substance: SIMVASTATIN
     Indication: BLOOD CHOLESTEROL ABNORMAL
     Route: 048
     Dates: start: 201611
  2. ATENOLOL. [Suspect]
     Active Substance: ATENOLOL
     Indication: HYPERTENSION
     Route: 048
  3. BRILINTA [Suspect]
     Active Substance: TICAGRELOR
     Indication: STENT PLACEMENT
     Dosage: 90MG IN THE MORNING WITH BREAKFAST AND 90MG AT NIGHT WITH DINNER.
     Route: 048
     Dates: start: 20161202
  4. SIMVASTATIN. [Concomitant]
     Active Substance: SIMVASTATIN
     Indication: BLOOD CHOLESTEROL ABNORMAL
     Route: 048
     Dates: start: 201611
  5. BABY ASPIRIN [Concomitant]
     Active Substance: ASPIRIN
     Indication: ANTICOAGULANT THERAPY
     Route: 048
     Dates: start: 2014

REACTIONS (12)
  - Headache [Unknown]
  - Arterial occlusive disease [Unknown]
  - Sinusitis [Unknown]
  - Musculoskeletal pain [Unknown]
  - Back pain [Unknown]
  - Movement disorder [Unknown]
  - Change of bowel habit [Unknown]
  - Cough [Unknown]
  - Neck pain [Unknown]
  - Muscle spasms [Unknown]
  - Weight decreased [Unknown]
  - Pain [Unknown]

NARRATIVE: CASE EVENT DATE: 2014
